FAERS Safety Report 14699951 (Version 1)
Quarter: 2018Q1

REPORT INFORMATION
  Report Type: Spontaneous
  Country: US (occurrence: US)
  Receive Date: 20180329
  Receipt Date: 20180329
  Transmission Date: 20180509
  Serious: Yes (Other)
  Sender: FDA-Public Use
  Company Number: None

PATIENT
  Age: 3 Year
  Sex: Male
  Weight: 22 kg

DRUGS (1)
  1. AMOXICILLIN. [Suspect]
     Active Substance: AMOXICILLIN
     Indication: OTITIS MEDIA
     Route: 048
     Dates: start: 20180324, end: 20180327

REACTIONS (5)
  - Nervous system disorder [None]
  - Abnormal behaviour [None]
  - Dizziness [None]
  - Dysarthria [None]
  - Cognitive disorder [None]

NARRATIVE: CASE EVENT DATE: 20180326
